FAERS Safety Report 6235472-3 (Version None)
Quarter: 2009Q2

REPORT INFORMATION
  Report Type: 
  Country: None (occurrence: None)
  Receive Date: 20090618
  Receipt Date: 20080409
  Transmission Date: 20091009
  Serious: No
  Sender: FDA-Public Use
  Company Number: US-ASTRAZENECA-2008UW07147

PATIENT
  Age: 72 Year
  Sex: Female
  Weight: 81.7 kg

DRUGS (7)
  1. RHINOCORT [Suspect]
     Indication: TINNITUS
     Route: 045
  2. SYNTHROID [Concomitant]
  3. TRIAVIL [Concomitant]
  4. ZOCOR [Concomitant]
  5. KLONOPIN [Concomitant]
  6. NAPROXEN [Concomitant]
  7. CARDIZEM [Concomitant]

REACTIONS (1)
  - ABNORMAL SENSATION IN EYE [None]
